FAERS Safety Report 23952651 (Version 3)
Quarter: 2024Q2

REPORT INFORMATION
  Report Type: Spontaneous
  Country: UM (occurrence: US)
  Receive Date: 20240607
  Receipt Date: 20240627
  Transmission Date: 20240716
  Serious: Yes (Other)
  Sender: FDA-Public Use
  Company Number: UM-ROCHE-3578459

PATIENT
  Age: 48 Year
  Sex: Female
  Weight: 98.4 kg

DRUGS (4)
  1. OCREVUS [Suspect]
     Active Substance: OCRELIZUMAB
     Indication: Relapsing-remitting multiple sclerosis
     Dosage: LAST DOSE: 11/APR/2024?FIRST DOSE: -JUL-2017?MOST RECENT DOSE: 11-APR-2024?OCREVUS 600 MG EVERY 6 MO
     Route: 065
     Dates: start: 201707
  2. TYSABRI [Concomitant]
     Active Substance: NATALIZUMAB
  3. GILENYA [Concomitant]
     Active Substance: FINGOLIMOD HYDROCHLORIDE
  4. EXTAVIA [Concomitant]
     Active Substance: INTERFERON BETA-1B

REACTIONS (1)
  - Organising pneumonia [Unknown]

NARRATIVE: CASE EVENT DATE: 20240417
